FAERS Safety Report 4616048-8 (Version None)
Quarter: 2005Q1

REPORT INFORMATION
  Report Type: 
  Country: None (occurrence: None)
  Receive Date: 20050321
  Receipt Date: 20050303
  Transmission Date: 20050727
  Serious: Yes (Hospitalization)
  Sender: FDA-Public Use
  Company Number: T05-GER-01004-01

PATIENT
  Age: 51 Year
  Sex: Female

DRUGS (11)
  1. CIPRAMIL (CITALOPRAM HYDROBROMIDE) [Suspect]
     Dosage: 20 MG QD
     Dates: start: 20010407, end: 20010429
  2. CIPRAMIL (CITALOPRAM HYDROBROMIDE) [Suspect]
     Dosage: 40 MG QD
     Dates: start: 20010430, end: 20010515
  3. SAROTEN RETARD (AMITRIPTYLINE HYDROCHLORIDE) [Suspect]
     Dosage: 100 MG QD
     Dates: start: 20010412, end: 20010423
  4. SAROTEN RETARD (AMITRIPTYLINE HYDROCHLORIDE) [Suspect]
     Dosage: 50 MG QD
     Dates: start: 20010424, end: 20010425
  5. SAROTEN RETARD (AMITRIPTYLINE HYDROCHLORIDE) [Suspect]
     Dosage: 25 MG QD
     Dates: start: 20010503, end: 20040506
  6. SAROTEN RETARD (AMITRIPTYLINE HYDROCHLORIDE) [Suspect]
     Dosage: 50 MG QD
     Dates: start: 20010507, end: 20010513
  7. SAROTEN RETARD (AMITRIPTYLINE HYDROCHLORIDE) [Suspect]
     Dosage: 75 MG QD
     Dates: start: 20010514, end: 20010527
  8. SAROTEN RETARD (AMITRIPTYLINE HYDROCHLORIDE) [Suspect]
     Dosage: 100 MG QD
     Dates: start: 20040528, end: 20010604
  9. ORFIRIL (VALPROATE SODIUM) [Suspect]
     Dosage: 300 MG QD
     Dates: start: 20010410, end: 20010418
  10. ORFIRIL (VALPROATE SODIUM) [Suspect]
     Dosage: 450 MG QD
     Dates: start: 20010419, end: 20010429
  11. EDRONAX (REBOXETINE) [Concomitant]

REACTIONS (4)
  - COORDINATION ABNORMAL [None]
  - DRUG INTERACTION [None]
  - GAIT DISTURBANCE [None]
  - TREMOR [None]
